FAERS Safety Report 4662412-0 (Version None)
Quarter: 2005Q2

REPORT INFORMATION
  Report Type: 
  Country: None (occurrence: None)
  Receive Date: 20050516
  Receipt Date: 20050225
  Transmission Date: 20051028
  Serious: Yes (Hospitalization)
  Sender: FDA-Public Use
  Company Number: JP-MERCK-0503USA00217

PATIENT
  Age: 51 Year
  Sex: Female
  Weight: 57 kg

DRUGS (3)
  1. ZOCOR [Suspect]
     Indication: HYPERLIPIDAEMIA
     Route: 048
     Dates: start: 20050107, end: 20050215
  2. LAFUTIDINE [Concomitant]
     Indication: GASTRITIS
     Route: 048
     Dates: start: 20041222, end: 20050215
  3. THIATON [Concomitant]
     Indication: GASTRITIS
     Route: 048
     Dates: start: 20041222, end: 20050215

REACTIONS (6)
  - HEPATITIS ACUTE [None]
  - INFLUENZA [None]
  - LIVER DISORDER [None]
  - MALAISE [None]
  - PHARYNGOLARYNGEAL PAIN [None]
  - PYREXIA [None]
